FAERS Safety Report 18596508 (Version 2)
Quarter: 2021Q1

REPORT INFORMATION
  Report Type: Spontaneous
  Country: US (occurrence: US)
  Receive Date: 20201209
  Receipt Date: 20210205
  Transmission Date: 20210419
  Serious: No
  Sender: FDA-Public Use
  Company Number: NVSC2020US327888

PATIENT

DRUGS (3)
  1. BEOVU [Suspect]
     Active Substance: BROLUCIZUMAB-DBLL
     Indication: NEOVASCULAR AGE-RELATED MACULAR DEGENERATION
     Dosage: 6 MG (EVERY 8?12 WEEKS)
     Route: 047
  2. BEOVU [Suspect]
     Active Substance: BROLUCIZUMAB-DBLL
     Dosage: 6 MG
     Route: 047
  3. BEOVU [Suspect]
     Active Substance: BROLUCIZUMAB-DBLL
     Dosage: 6 MG
     Route: 047

REACTIONS (2)
  - Eye inflammation [Recovering/Resolving]
  - Visual impairment [Recovering/Resolving]
